FAERS Safety Report 13497601 (Version 2)
Quarter: 2018Q3

REPORT INFORMATION
  Report Type: Report from Study
  Country: None (occurrence: US)
  Receive Date: 20170501
  Receipt Date: 20180801
  Transmission Date: 20181010
  Serious: Yes (Other)
  Sender: FDA-Public Use
  Company Number: US-ABBVIE-17K-163-1955656-00

PATIENT
  Sex: Female

DRUGS (1)
  1. HUMIRA [Suspect]
     Active Substance: ADALIMUMAB
     Indication: CROHN^S DISEASE
     Route: 058

REACTIONS (7)
  - Hernia [Unknown]
  - Fatigue [Unknown]
  - Impaired healing [Unknown]
  - Asthenia [Unknown]
  - Post procedural complication [Unknown]
  - Intestinal resection [Unknown]
  - Abdominal pain upper [Recovering/Resolving]
